FAERS Safety Report 16130280 (Version 3)
Quarter: 2019Q2

REPORT INFORMATION
  Report Type: Spontaneous
  Country: US (occurrence: US)
  Receive Date: 20190328
  Receipt Date: 20190405
  Transmission Date: 20190711
  Serious: Yes (Hospitalization, Other)
  Sender: FDA-Public Use
  Company Number: US-PFIZER INC-2019132388

PATIENT
  Age: 65 Year
  Sex: Female

DRUGS (8)
  1. PROSTAPHLIN [Suspect]
     Active Substance: OXACILLIN SODIUM
     Dosage: 1 G, DAILY (CUMULATIVE DOSE 76 GM)
     Route: 042
  2. OXACILLIN SODIUM [OXACILLIN] [Suspect]
     Active Substance: OXACILLIN SODIUM
     Indication: CELLULITIS
     Dosage: 2 G, DAILY (CUMULATIVE DOSE 76 GM)
     Route: 048
  3. OXACILLIN SODIUM [OXACILLIN] [Suspect]
     Active Substance: OXACILLIN SODIUM
     Dosage: 6 G, DAILY (CUMULATIVE DOSE 76 GM)
     Route: 048
  4. PROSTAPHLIN [Suspect]
     Active Substance: OXACILLIN SODIUM
     Indication: CELLULITIS
     Dosage: 2 G, DAILY (CUMULATIVE DOSE 76 GM)
     Route: 048
     Dates: start: 19640203
  5. PROSTAPHLIN [Suspect]
     Active Substance: OXACILLIN SODIUM
     Dosage: 500 MG, 2X/DAY (CUMULATIVE DOSE 76 GM)
     Route: 048
     Dates: start: 19640218, end: 19640306
  6. OXACILLIN SODIUM [OXACILLIN] [Suspect]
     Active Substance: OXACILLIN SODIUM
     Dosage: 1 G, DAILY (CUMULATIVE DOSE 76 GM)
     Route: 048
  7. PHENOTHIAZINE [Concomitant]
     Active Substance: PHENOTHIAZINE
     Dosage: UNK
  8. PROSTAPHLIN [Suspect]
     Active Substance: OXACILLIN SODIUM
     Dosage: 6 G, DAILY (CUMULATIVE DOSE 76 GM)
     Route: 048
     Dates: start: 19640206

REACTIONS (3)
  - Cholestasis [Recovered/Resolved]
  - Pruritus [Recovered/Resolved]
  - Drug-induced liver injury [Recovered/Resolved]

NARRATIVE: CASE EVENT DATE: 1964
